FAERS Safety Report 6202945-9 (Version None)
Quarter: 2009Q2

REPORT INFORMATION
  Report Type: 
  Country: None (occurrence: None)
  Receive Date: 20090526
  Receipt Date: 20090515
  Transmission Date: 20091009
  Serious: Yes (Hospitalization)
  Sender: FDA-Public Use
  Company Number: US-GENENTECH-282528

PATIENT
  Sex: Male
  Weight: 99.6 kg

DRUGS (10)
  1. BLINDED ANTI-CD40 [Suspect]
     Indication: DIFFUSE LARGE B-CELL LYMPHOMA
     Dosage: 2 MG/KG, X1
     Route: 042
     Dates: start: 20090224, end: 20090224
  2. BLINDED PLACEBO [Suspect]
     Indication: DIFFUSE LARGE B-CELL LYMPHOMA
     Dosage: 2 MG/KG, X1
     Route: 042
     Dates: start: 20090224, end: 20090224
  3. BLINDED ANTI-CD40 [Suspect]
     Dosage: 4 MG/KG, X1
     Route: 042
     Dates: start: 20090227, end: 20090227
  4. BLINDED PLACEBO [Suspect]
     Dosage: 4 MG/KG, X1
     Route: 042
     Dates: start: 20090227, end: 20090227
  5. BLINDED ANTI-CD40 [Suspect]
     Dosage: 8 MG/KG, 1/WEEK
     Route: 042
     Dates: start: 20090304, end: 20090325
  6. BLINDED PLACEBO [Suspect]
     Dosage: 8 MG/KG, 1/WEEK
     Route: 042
     Dates: start: 20090304, end: 20090325
  7. RITUXAN [Suspect]
     Indication: DIFFUSE LARGE B-CELL LYMPHOMA
     Dosage: 375 MG/M2, Q3W
     Route: 042
     Dates: start: 20090223, end: 20090318
  8. IFOSFAMIDE [Suspect]
     Indication: DIFFUSE LARGE B-CELL LYMPHOMA
     Dosage: 5 G/M2, Q3W
     Route: 042
     Dates: start: 20090226, end: 20090319
  9. CARBOPLATIN [Suspect]
     Indication: DIFFUSE LARGE B-CELL LYMPHOMA
     Dosage: 5 UNK, Q3W
     Route: 042
     Dates: start: 20090226, end: 20090319
  10. ETOPOSIDE [Suspect]
     Indication: DIFFUSE LARGE B-CELL LYMPHOMA
     Dosage: `
     Route: 042
     Dates: start: 20090225, end: 20090320

REACTIONS (1)
  - CELLULITIS GANGRENOUS [None]
